FAERS Safety Report 8813740 (Version 2)
Quarter: 2014Q4

REPORT INFORMATION
  Report Type: Report from Study
  Country: US (occurrence: US)
  Receive Date: 20120928
  Receipt Date: 20141112
  Transmission Date: 20150529
  Serious: Yes (Death, Hospitalization)
  Sender: FDA-Public Use
  Company Number: US-ROCHE-1129655

PATIENT
  Sex: Female
  Weight: 78.09 kg

DRUGS (6)
  1. HERCEPTIN [Suspect]
     Active Substance: TRASTUZUMAB
     Dosage: MAINTAINCE DOSE: 157 MG AND SUBSEQUENT DOSES ON 15/FEB/1999, 22/FEB/1999, 08/MAR/1999, 15/MAR/1999,
     Route: 042
     Dates: start: 19990215
  2. HERCEPTIN [Suspect]
     Active Substance: TRASTUZUMAB
     Indication: BREAST CANCER FEMALE
     Dosage: LOADING DOSE: 314 MG OVER 90 MINS
     Route: 042
     Dates: start: 19990208, end: 19990208
  3. CISPLATIN. [Concomitant]
     Active Substance: CISPLATIN
     Route: 065
  4. ZOFRAN [Concomitant]
     Active Substance: ONDANSETRON HYDROCHLORIDE
  5. PLATINOL [Concomitant]
     Active Substance: CISPLATIN
  6. DECADRON [Concomitant]
     Active Substance: DEXAMETHASONE

REACTIONS (6)
  - Dyspnoea [Unknown]
  - Death [Fatal]
  - Cardiac failure congestive [Unknown]
  - Cough [Unknown]
  - Fluid overload [Unknown]
  - Disease progression [Unknown]
